FAERS Safety Report 10331468 (Version 1)
Quarter: 2014Q3

REPORT INFORMATION
  Report Type: Spontaneous
  Country: US (occurrence: US)
  Receive Date: 20140722
  Receipt Date: 20140722
  Transmission Date: 20150326
  Serious: Yes (Other)
  Sender: FDA-Public Use
  Company Number: US-PFIZER INC-2014199009

PATIENT
  Sex: Male

DRUGS (1)
  1. SUTENT [Suspect]
     Active Substance: SUNITINIB MALATE
     Indication: RENAL CANCER
     Dosage: 25 MG, DAILY, CYCLE OF 4 WEEKS ON/ 2 WEEKS OFF,

REACTIONS (2)
  - Renal impairment [Recovering/Resolving]
  - Neutrophil count abnormal [Not Recovered/Not Resolved]
